FAERS Safety Report 6816905-8 (Version None)
Quarter: 2010Q3

REPORT INFORMATION
  Report Type: 
  Country: None (occurrence: None)
  Receive Date: 20100706
  Receipt Date: 20100630
  Transmission Date: 20110219
  Serious: Yes (Other)
  Sender: FDA-Public Use
  Company Number: IE-BRISTOL-MYERS SQUIBB COMPANY-15004963

PATIENT
  Age: 39 Year
  Sex: Female
  Weight: 85 kg

DRUGS (3)
  1. ATAZANAVIR [Suspect]
     Indication: HIV INFECTION
     Dosage: COURSE 1
     Route: 048
     Dates: start: 20051002
  2. NORVIR [Suspect]
     Indication: HIV INFECTION
     Dosage: COURSE 1
     Route: 048
     Dates: start: 20051002
  3. TRUVADA [Suspect]
     Indication: HIV INFECTION
     Dosage: 1DF=1TABLET COURSE 1
     Route: 048
     Dates: start: 20051002

REACTIONS (3)
  - CAESAREAN SECTION [None]
  - NORMAL NEWBORN [None]
  - PREGNANCY [None]
